FAERS Safety Report 11037277 (Version 1)
Quarter: 2015Q2

REPORT INFORMATION
  Report Type: Spontaneous
  Country: US (occurrence: None)
  Receive Date: 20150415
  Receipt Date: 20150415
  Transmission Date: 20150821
  Serious: Yes (Life-Threatening, Hospitalization)
  Sender: FDA-Public Use
  Company Number: None

PATIENT
  Age: 56 Year
  Sex: Female
  Weight: 72.58 kg

DRUGS (7)
  1. CERTIRIZINE [Concomitant]
  2. LEVOTHYROXINE [Concomitant]
     Active Substance: LEVOTHYROXINE
  3. BIOTIN [Concomitant]
     Active Substance: BIOTIN
  4. LEVOFLOXACIN. [Suspect]
     Active Substance: LEVOFLOXACIN
     Indication: SINUSITIS
     Dosage: 1 TABLET
     Route: 048
     Dates: start: 20150405, end: 20150413
  5. FLONASE [Concomitant]
     Active Substance: FLUTICASONE PROPIONATE
  6. TAB A VITE [Concomitant]
  7. COQ10 [Concomitant]
     Active Substance: UBIDECARENONE

REACTIONS (9)
  - Chest pain [None]
  - Dizziness [None]
  - Blood pressure increased [None]
  - Dyspnoea [None]
  - Troponin increased [None]
  - Hypoaesthesia [None]
  - Psychomotor hyperactivity [None]
  - Fall [None]
  - Foot fracture [None]

NARRATIVE: CASE EVENT DATE: 20150409
